FAERS Safety Report 23393798 (Version 1)
Quarter: 2024Q1

REPORT INFORMATION
  Report Type: Spontaneous
  Country: BR (occurrence: BR)
  Receive Date: 20240111
  Receipt Date: 20240111
  Transmission Date: 20240410
  Serious: Yes (Other)
  Sender: FDA-Public Use
  Company Number: BR-BAYER-2024A001483

PATIENT
  Age: 52 Year
  Sex: Male

DRUGS (1)
  1. PRIMOVIST [Suspect]
     Active Substance: GADOXETATE DISODIUM
     Indication: Magnetic resonance imaging abdominal
     Dosage: UNK UNK, ONCE
     Route: 042
     Dates: start: 20231220, end: 20231220

REACTIONS (2)
  - Pruritus [Recovered/Resolved]
  - Injection site mass [None]

NARRATIVE: CASE EVENT DATE: 20231220
